FAERS Safety Report 4282098-7 (Version None)
Quarter: 2004Q1

REPORT INFORMATION
  Report Type: 
  Country: None (occurrence: None)
  Receive Date: 20040130
  Receipt Date: 20030516
  Transmission Date: 20041129
  Serious: Yes (Hospitalization, Disabling)
  Sender: FDA-Public Use
  Company Number: US-BRISTOL-MYERS SQUIBB COMPANY-12278644

PATIENT
  Age: 19 Year
  Sex: Male

DRUGS (3)
  1. TRAZODONE HCL [Suspect]
     Indication: DEPRESSION
     Dosage: AT BEDTIME
     Route: 048
     Dates: start: 20030411, end: 20030506
  2. PROZAC [Concomitant]
     Dosage: AT NOON
     Dates: start: 20030411, end: 20030506
  3. ATIVAN [Concomitant]
     Dosage: 0.5 MG BID X 7 DAYS, THEN 1 PO HS X 7 DAYS.
     Dates: start: 20030411, end: 20030424

REACTIONS (1)
  - PRIAPISM [None]
